FAERS Safety Report 25665944 (Version 1)
Quarter: 2025Q3

REPORT INFORMATION
  Report Type: Spontaneous
  Country: US (occurrence: US)
  Receive Date: 20250811
  Receipt Date: 20250811
  Transmission Date: 20251021
  Serious: Yes (Life-Threatening, Hospitalization, Other)
  Sender: DR REDDYS
  Company Number: US-DRL-USA-USA/2025/08/012163

PATIENT
  Age: 23 Year
  Sex: Female

DRUGS (2)
  1. NALOXONE [Suspect]
     Active Substance: NALOXONE
     Indication: Overdose
     Route: 045
  2. DIAZEPAM [Concomitant]
     Active Substance: DIAZEPAM
     Indication: Seizure

REACTIONS (1)
  - Non-cardiogenic pulmonary oedema [Recovering/Resolving]
